APPROVED DRUG PRODUCT: CHLOROMYCETIN
Active Ingredient: CHLORAMPHENICOL
Strength: 0.5%
Dosage Form/Route: SOLUTION/DROPS;OTIC
Application: N050205 | Product #001
Applicant: PARKEDALE PHARMACEUTICALS INC
Approved: Approved Prior to Jan 1, 1982 | RLD: No | RS: No | Type: DISCN